FAERS Safety Report 5931395-5 (Version None)
Quarter: 2008Q4

REPORT INFORMATION
  Report Type: 
  Country: None (occurrence: None)
  Receive Date: 20081009
  Receipt Date: 20080630
  Transmission Date: 20090506
  Serious: Yes (Disabling)
  Sender: FDA-Public Use
  Company Number: PHEH2008US05143

PATIENT
  Age: 54 Year
  Sex: Female

DRUGS (4)
  1. ZOMETA [Suspect]
     Indication: MULTIPLE MYELOMA
     Dosage: 4MG Q MONTH, INTRAVENOUS
     Route: 042
     Dates: start: 20040401, end: 20070501
  2. THALIDOMIDE [Concomitant]
  3. DECADRON #1 (DEXAMETHASONE SODIUM PHOSPHATE) [Concomitant]
  4. AMLODIPINE BESYLATE [Concomitant]

REACTIONS (1)
  - BONE DISORDER [None]
